FAERS Safety Report 15723825 (Version 1)
Quarter: 2018Q4

REPORT INFORMATION
  Report Type: Spontaneous
  Country: US (occurrence: US)
  Receive Date: 20181214
  Receipt Date: 20181214
  Transmission Date: 20190205
  Serious: Yes (Disabling, Congenital Anomaly)
  Sender: FDA-Public Use
  Company Number: None

PATIENT
  Sex: Male
  Weight: 72 kg

DRUGS (1)
  1. RITODRINE [Suspect]
     Active Substance: RITODRINE
     Indication: PREMATURE LABOUR
     Route: 048

REACTIONS (9)
  - Hypotonia [None]
  - Foetal exposure during pregnancy [None]
  - Anger [None]
  - Depression [None]
  - Self esteem decreased [None]
  - Cognitive disorder [None]
  - Bipolar disorder [None]
  - Congenital myopathy [None]
  - Incontinence [None]
